FAERS Safety Report 25854849 (Version 2)
Quarter: 2025Q4

REPORT INFORMATION
  Report Type: Spontaneous
  Country: US (occurrence: US)
  Receive Date: 20250927
  Receipt Date: 20251128
  Transmission Date: 20260118
  Serious: Yes (Other)
  Sender: SANOFI AVENTIS
  Company Number: US-SANOFI-02667979

PATIENT
  Sex: Female

DRUGS (1)
  1. DUPIXENT [Suspect]
     Active Substance: DUPILUMAB
     Dosage: UNK

REACTIONS (9)
  - Anaphylactic reaction [Unknown]
  - Pharyngeal swelling [Unknown]
  - Skin swelling [Unknown]
  - Throat tightness [Unknown]
  - Drug hypersensitivity [Recovering/Resolving]
  - Peripheral swelling [Recovering/Resolving]
  - Erythema [Recovering/Resolving]
  - Nausea [Recovering/Resolving]
  - Sensitive skin [Recovering/Resolving]
